FAERS Safety Report 21773023 (Version 1)
Quarter: 2022Q4

REPORT INFORMATION
  Report Type: Spontaneous
  Country: BE (occurrence: BE)
  Receive Date: 20221223
  Receipt Date: 20221223
  Transmission Date: 20230113
  Serious: Yes (Life-Threatening, Hospitalization, Other)
  Sender: FDA-Public Use
  Company Number: None

PATIENT
  Age: 62 Year
  Sex: Male
  Weight: 60 kg

DRUGS (8)
  1. IRBESARTAN [Suspect]
     Active Substance: IRBESARTAN
     Indication: Product used for unknown indication
     Dosage: .5 DOSAGE FORMS DAILY; IN THE MORNING , FORM STRENGTH : 150 MG
  2. ASPIRIN [Interacting]
     Active Substance: ASPIRIN
     Indication: Product used for unknown indication
     Dosage: FORM STRENGTH : 80 MG  UNIT DOSE : 1 DF , FREQUENCY TIME : 1 DAY
  3. SIMVASTATIN [Suspect]
     Active Substance: SIMVASTATIN
     Indication: Product used for unknown indication
     Dosage: 1 DOSAGE FORMS DAILY; 1 IN THE EVENING , FORM STRENGTH : 20 MG
  4. VARENICLINE TARTRATE [Suspect]
     Active Substance: VARENICLINE TARTRATE
     Indication: Ex-tobacco user
     Dosage: 0.5 MG + 1 MG , DURATION : 11 MONTH
     Dates: start: 202006, end: 202105
  5. VALPROATE SODIUM [Interacting]
     Active Substance: VALPROATE SODIUM
     Indication: Seizure
     Dosage: 4 DOSAGE FORMS DAILY; 1 IN THE MORNING, 1 IN THE EVENING.300 CONTROLLED RELEASE TABLETS , THERAPY ST
     Dates: end: 20210526
  6. GINKGO [Concomitant]
     Active Substance: GINKGO
     Indication: Product used for unknown indication
     Dosage: 1 DOSAGE FORMS DAILY; 1 IN THE MORNING , FORM STRENGTH : 40 MG
     Dates: end: 202102
  7. ALENDRONATE EG [Concomitant]
     Indication: Product used for unknown indication
     Dosage: EVERY MONDAY  , FORM STRENGTH : 70 MG , UNIT DOSE : 1 DF , FREQUENCY TIME : 1 WEEKS
  8. STEOVIT FORTE [Concomitant]
     Indication: Product used for unknown indication
     Dosage: 1 DOSAGE FORMS DAILY; 1 IN THE EVENING, ORANGE FIZZY TABLETS 1000 MG/880 IU

REACTIONS (3)
  - Autoimmune pancytopenia [Recovered/Resolved]
  - Vasculitis [Recovered/Resolved]
  - Drug interaction [Recovered/Resolved]

NARRATIVE: CASE EVENT DATE: 20210501
